FAERS Safety Report 6986695-7 (Version None)
Quarter: 2010Q3

REPORT INFORMATION
  Report Type: 
  Country: None (occurrence: None)
  Receive Date: 20100915
  Receipt Date: 20090730
  Transmission Date: 20110219
  Serious: No
  Sender: FDA-Public Use
  Company Number: US-WYE-H10396609

PATIENT
  Sex: Female

DRUGS (2)
  1. PRISTIQ [Suspect]
     Route: 048
     Dates: start: 20090101, end: 20090101
  2. PRISTIQ [Suspect]
     Dosage: ^EVERY OTHER DAY FOR A FEW DAYS^
     Route: 048
     Dates: start: 20090101, end: 20090727

REACTIONS (3)
  - DRUG WITHDRAWAL SYNDROME [None]
  - NAUSEA [None]
  - PARAESTHESIA [None]
